FAERS Safety Report 25067576 (Version 3)
Quarter: 2025Q3

REPORT INFORMATION
  Report Type: Spontaneous
  Country: JP (occurrence: JP)
  Receive Date: 20250312
  Receipt Date: 20250818
  Transmission Date: 20251021
  Serious: Yes (Other)
  Sender: ROCHE
  Company Number: JP-CHUGAI-2024043764

PATIENT
  Age: 78 Year
  Sex: Female
  Weight: 44.5 kg

DRUGS (14)
  1. ACTEMRA [Suspect]
     Active Substance: TOCILIZUMAB
     Indication: Rheumatoid arthritis
     Route: 058
     Dates: start: 2011, end: 202409
  2. ACTEMRA [Suspect]
     Active Substance: TOCILIZUMAB
     Dosage: 162 MILLIGRAM, ONCE/2WEEKS
     Route: 050
  3. ACTEMRA [Suspect]
     Active Substance: TOCILIZUMAB
     Dosage: IRREGULAR ADMINISTRATION
     Route: 058
     Dates: start: 20241121, end: 20250618
  4. ASPIRIN [Concomitant]
     Active Substance: ASPIRIN
  5. RABEPRAZOLE SODIUM [Concomitant]
     Active Substance: RABEPRAZOLE SODIUM
  6. PITAVASTATIN CALCIUM [Concomitant]
     Active Substance: PITAVASTATIN CALCIUM
  7. CARVEDILOL [Concomitant]
     Active Substance: CARVEDILOL
  8. NIFEDIPINE [Concomitant]
     Active Substance: NIFEDIPINE
  9. CALCIUM CARBONATE\CHOLECALCIFEROL\MAGNESIUM CARBONATE [Concomitant]
     Active Substance: CALCIUM CARBONATE\CHOLECALCIFEROL\MAGNESIUM CARBONATE
  10. FEBUXOSTAT [Concomitant]
     Active Substance: FEBUXOSTAT
  11. AMBROXOL HYDROCHLORIDE [Concomitant]
     Active Substance: AMBROXOL HYDROCHLORIDE
  12. SODIUM BICARBONATE [Concomitant]
     Active Substance: SODIUM BICARBONATE
  13. LOKELMA [SODIUM ZIRCONIUM CYCLOSILICATE] [Concomitant]
  14. NESINA [Concomitant]
     Active Substance: ALOGLIPTIN BENZOATE

REACTIONS (6)
  - Diabetic nephropathy [Unknown]
  - Platelet count decreased [Recovered/Resolved]
  - Anaemia [Unknown]
  - Treatment noncompliance [Unknown]
  - Hepatic cirrhosis [Unknown]
  - Renal impairment [Not Recovered/Not Resolved]

NARRATIVE: CASE EVENT DATE: 20200101
